FAERS Safety Report 4726814-6 (Version None)
Quarter: 2005Q3

REPORT INFORMATION
  Report Type: 
  Country: None (occurrence: None)
  Receive Date: 20050725
  Receipt Date: 20050428
  Transmission Date: 20060218
  Serious: No
  Sender: FDA-Public Use
  Company Number: USA050496854

PATIENT
  Age: 43 Year
  Sex: Female

DRUGS (4)
  1. STRATTERA [Suspect]
     Indication: ATTENTION DEFICIT/HYPERACTIVITY DISORDER
     Dosage: 40 MG DAY
     Dates: start: 20050427
  2. ZOLOFT [Concomitant]
  3. ORAL CONTRACEPTIVE NOS [Concomitant]
  4. TYLENOL SINUS [Concomitant]

REACTIONS (3)
  - FATIGUE [None]
  - FLUSHING [None]
  - HEADACHE [None]
